FAERS Safety Report 7948579-7 (Version None)
Quarter: 2011Q4

REPORT INFORMATION
  Report Type: 
  Country: None (occurrence: None)
  Receive Date: 20111130
  Receipt Date: 20111117
  Transmission Date: 20120403
  Serious: Yes (Hospitalization)
  Sender: FDA-Public Use
  Company Number: PT-SANOFI-AVENTIS-2010SA044562

PATIENT
  Age: 80 Year
  Sex: Male

DRUGS (3)
  1. OLMESARTAN MEDOXOMIL [Concomitant]
     Indication: HYPERTENSION
     Route: 048
     Dates: start: 20090910
  2. SIMVASTATIN [Concomitant]
     Route: 048
     Dates: start: 20090825
  3. LEUPROLIDE ACETATE [Suspect]
     Indication: PROSTATE CANCER
     Dosage: FREQUENCY: EVERY THREE MONTHS
     Route: 058
     Dates: start: 20070124

REACTIONS (1)
  - OSTEOPOROSIS [None]
